FAERS Safety Report 10219434 (Version 1)
Quarter: 2014Q2

REPORT INFORMATION
  Report Type: Spontaneous
  Country: US (occurrence: US)
  Receive Date: 20140605
  Receipt Date: 20140605
  Transmission Date: 20141212
  Serious: Yes (Other)
  Sender: FDA-Public Use
  Company Number: US-PFIZER INC-2014152364

PATIENT
  Age: 60 Year
  Sex: Female
  Weight: 77.1 kg

DRUGS (5)
  1. DICLOFENAC SODIUM/MISOPROSTOL [Suspect]
     Indication: ARTHRITIS
     Dosage: UNKOWN DOSE (STRENGTH: 75/200MG) 1X/DAY
     Route: 048
     Dates: end: 20140601
  2. DICLOFENAC SODIUM/MISOPROSTOL [Suspect]
     Indication: SPONDYLITIS
  3. ESTROGEN [Concomitant]
     Dosage: 1 MG, 1X/DAY
  4. MAGNEESIUM [Concomitant]
     Indication: MUSCLE SPASMS
     Dosage: UNK
  5. POTASSIUM [Concomitant]
     Indication: MUSCLE SPASMS
     Dosage: UNK

REACTIONS (3)
  - Haemorrhage [Recovered/Resolved]
  - Anaemia [Recovered/Resolved]
  - Drug effect incomplete [Unknown]
